FAERS Safety Report 5277069-8 (Version None)
Quarter: 2007Q1

REPORT INFORMATION
  Report Type: 
  Country: None (occurrence: None)
  Receive Date: 20070327
  Receipt Date: 20070314
  Transmission Date: 20070707
  Serious: Yes (Disabling, Other)
  Sender: FDA-Public Use
  Company Number: US-AMGEN-STX215138

PATIENT
  Sex: Female

DRUGS (3)
  1. ENBREL [Suspect]
     Indication: RHEUMATOID ARTHRITIS
     Route: 058
     Dates: start: 20040901
  2. ENBREL [Suspect]
     Indication: SCLERODERMA
  3. METHOTREXATE [Concomitant]
     Route: 058
     Dates: start: 20020101

REACTIONS (2)
  - ABASIA [None]
  - RHEUMATOID ARTHRITIS [None]
